FAERS Safety Report 4465048-X (Version None)
Quarter: 2004Q4

REPORT INFORMATION
  Report Type: 
  Country: None (occurrence: None)
  Receive Date: 20041004
  Receipt Date: 20040929
  Transmission Date: 20050328
  Serious: Yes (Death, Hospitalization)
  Sender: FDA-Public Use
  Company Number: PHBS2004JP12900

PATIENT
  Age: 71 Year
  Sex: Male

DRUGS (6)
  1. TEGRETOL [Suspect]
     Indication: EPILEPSY
     Dosage: 150 MG/DAY
     Route: 048
     Dates: start: 20031209, end: 20040119
  2. HERBESSOR R [Concomitant]
     Indication: ANGINA PECTORIS
     Route: 048
     Dates: start: 20030623, end: 20040119
  3. SIGMART [Concomitant]
     Indication: ANGINA PECTORIS
     Route: 048
     Dates: start: 20030623, end: 20040119
  4. ISOSORBIDE MONONITRATE [Concomitant]
     Indication: ANGINA PECTORIS
     Route: 048
     Dates: start: 20030623, end: 20040119
  5. DEPAKENE [Concomitant]
     Indication: EPILEPSY
     Dosage: 400 MG/DAY
     Route: 048
     Dates: start: 20030925, end: 20040119
  6. ALEVIATIN [Concomitant]
     Indication: EPILEPSY
     Route: 065
     Dates: start: 20040119

REACTIONS (4)
  - BRUGADA SYNDROME [None]
  - DRUG ERUPTION [None]
  - RASH [None]
  - RENAL FAILURE ACUTE [None]
